FAERS Safety Report 15061772 (Version 1)
Quarter: 2018Q2

REPORT INFORMATION
  Report Type: Report from Study
  Country: US (occurrence: US)
  Receive Date: 20180625
  Receipt Date: 20180625
  Transmission Date: 20180711
  Serious: Yes (Other)
  Sender: FDA-Public Use
  Company Number: US-ROCHE-2127703

PATIENT
  Age: 65 Year
  Sex: Male
  Weight: 86.26 kg

DRUGS (6)
  1. CORTISONE CREAM (UNK INGREDIENTS) [Concomitant]
     Indication: RASH
     Route: 061
     Dates: start: 201805
  2. ESBRIET [Suspect]
     Active Substance: PIRFENIDONE
     Indication: IDIOPATHIC PULMONARY FIBROSIS
     Dosage: 3 TABLETS 3 TIMES PER DAY
     Route: 048
     Dates: start: 201804
  3. ESBRIET [Suspect]
     Active Substance: PIRFENIDONE
     Route: 048
     Dates: start: 201803
  4. ESBRIET [Suspect]
     Active Substance: PIRFENIDONE
     Route: 048
     Dates: start: 20180411
  5. ESBRIET [Suspect]
     Active Substance: PIRFENIDONE
     Route: 048
  6. WARFARIN [Concomitant]
     Active Substance: WARFARIN
     Route: 048

REACTIONS (8)
  - Rash [Recovered/Resolved]
  - Loss of consciousness [Unknown]
  - Feeling abnormal [Not Recovered/Not Resolved]
  - Nausea [Not Recovered/Not Resolved]
  - Loss of consciousness [Recovered/Resolved]
  - Decreased appetite [Not Recovered/Not Resolved]
  - Fall [Unknown]
  - Dizziness [Not Recovered/Not Resolved]

NARRATIVE: CASE EVENT DATE: 201805
